FAERS Safety Report 8823277 (Version 1)
Quarter: 2012Q4

REPORT INFORMATION
  Report Type: 
  Country: JP (occurrence: JP)
  Receive Date: 20121003
  Receipt Date: 20121003
  Transmission Date: 20130627
  Serious: Yes (Disabling)
  Sender: FDA-Public Use
  Company Number: JP-GLAXOSMITHKLINE-B0834934A

PATIENT
  Age: 60 Year
  Sex: Female
  Weight: 42 kg

DRUGS (2)
  1. HYCAMTIN [Suspect]
     Indication: OVARIAN CANCER RECURRENT
     Dosage: 1MGM2 per day
     Route: 042
     Dates: start: 20111025, end: 20111124
  2. CEFCAPENE PIVOXIL HYDROCHLORIDE [Concomitant]
     Route: 048
     Dates: start: 20111205

REACTIONS (9)
  - White blood cell count decreased [Recovering/Resolving]
  - Neutrophil count decreased [Recovering/Resolving]
  - Red blood cell count decreased [Recovered/Resolved]
  - Anaemia [Unknown]
  - Platelet count decreased [Recovering/Resolving]
  - Blood urea increased [Not Recovered/Not Resolved]
  - Blood creatinine increased [Not Recovered/Not Resolved]
  - Pyrexia [Recovering/Resolving]
  - Infection [Unknown]
